FAERS Safety Report 12255921 (Version 1)
Quarter: 2016Q2

REPORT INFORMATION
  Report Type: Spontaneous
  Country: US (occurrence: None)
  Receive Date: 20160411
  Receipt Date: 20160411
  Transmission Date: 20160815
  Serious: Yes (Disabling)
  Sender: FDA-Public Use
  Company Number: None

PATIENT
  Age: 62 Year
  Sex: Female
  Weight: 45.36 kg

DRUGS (8)
  1. METHYLPREDNISOLONE, 4 MG CADISTA [Suspect]
     Active Substance: METHYLPREDNISOLONE
     Indication: SINUSITIS
     Dosage: DOSE PACK TAKEN BY MOUTH
     Route: 048
     Dates: start: 20160220, end: 20160224
  2. PANTOPRAZOLE [Concomitant]
     Active Substance: PANTOPRAZOLE SODIUM
  3. METHYLPREDNISOLONE, 4 MG CADISTA [Suspect]
     Active Substance: METHYLPREDNISOLONE
     Indication: RHINITIS ALLERGIC
     Dosage: DOSE PACK TAKEN BY MOUTH
     Route: 048
     Dates: start: 20160220, end: 20160224
  4. ALLEGRA-D [Concomitant]
     Active Substance: FEXOFENADINE\PSEUDOEPHEDRINE
  5. LEVOFLOXACIN, 500MG MACLEODS [Suspect]
     Active Substance: LEVOFLOXACIN
     Indication: SINUSITIS
     Dosage: 10 TABLET(S) ONCE A DAY TAKEN BY MOUTH?
     Route: 048
     Dates: start: 20160220, end: 20160229
  6. SINGULAIR [Concomitant]
     Active Substance: MONTELUKAST SODIUM
  7. LEVOFLOXACIN, 500MG MACLEODS [Suspect]
     Active Substance: LEVOFLOXACIN
     Indication: RHINITIS ALLERGIC
     Dosage: 10 TABLET(S) ONCE A DAY TAKEN BY MOUTH?
     Route: 048
     Dates: start: 20160220, end: 20160229
  8. FLONASE [Concomitant]
     Active Substance: FLUTICASONE PROPIONATE

REACTIONS (3)
  - Tendon disorder [None]
  - Pain in extremity [None]
  - Drug prescribing error [None]

NARRATIVE: CASE EVENT DATE: 20160224
